FAERS Safety Report 4305384-0 (Version None)
Quarter: 2004Q1

REPORT INFORMATION
  Report Type: 
  Country: None (occurrence: None)
  Receive Date: 20040226
  Receipt Date: 20030918
  Transmission Date: 20041129
  Serious: Yes (Other)
  Sender: FDA-Public Use
  Company Number: US-BRISTOL-MYERS SQUIBB COMPANY-12388492

PATIENT
  Age: 46 Year
  Sex: Female
  Weight: 106 kg

DRUGS (6)
  1. TAXOL [Suspect]
     Indication: OVARIAN CANCER
     Route: 042
     Dates: start: 20030918
  2. ZANTAC [Concomitant]
     Indication: PREMEDICATION
  3. BENADRYL [Concomitant]
     Indication: PREMEDICATION
  4. DECADRON [Concomitant]
     Indication: PREMEDICATION
     Dosage: 6 + 12 HOURS PRIOR TO TAXOL
     Route: 048
  5. FENTANYL [Concomitant]
  6. TYLOX [Concomitant]
     Indication: PAIN
     Dosage: 1-2 DOSAGE FORM

REACTIONS (4)
  - BLOOD PRESSURE INCREASED [None]
  - CHEST PAIN [None]
  - DYSPNOEA [None]
  - HEART RATE DECREASED [None]
